FAERS Safety Report 9443674 (Version 1)
Quarter: 2013Q3

REPORT INFORMATION
  Report Type: Spontaneous
  Country: DE (occurrence: DE)
  Receive Date: 20130806
  Receipt Date: 20130806
  Transmission Date: 20140515
  Serious: Yes (Hospitalization)
  Sender: FDA-Public Use
  Company Number: PHHY2013DE081580

PATIENT
  Age: 22 Year
  Sex: Male

DRUGS (5)
  1. CITALOPRAM [Suspect]
     Indication: OBSESSIVE-COMPULSIVE DISORDER
     Dosage: 20 MG, PER DAY
  2. CITALOPRAM [Suspect]
     Dosage: 40 MG, PER DAY
  3. CITALOPRAM [Suspect]
     Dosage: 60 MG, PER DAY
  4. SERTRALINE [Suspect]
     Indication: OBSESSIVE-COMPULSIVE DISORDER
     Dosage: 50 MG, DAY
  5. MIRTAZAPINE [Concomitant]
     Dosage: 30 MG, PER DAY
     Dates: start: 201201

REACTIONS (6)
  - Neuropsychiatric syndrome [Recovered/Resolved]
  - Psychiatric symptom [Recovered/Resolved]
  - Obsessive-compulsive disorder [Recovered/Resolved]
  - Anxiety [Recovered/Resolved]
  - Hallucinations, mixed [Recovered/Resolved]
  - Agitation [Recovered/Resolved]
